FAERS Safety Report 6841539-9 (Version None)
Quarter: 2010Q3

REPORT INFORMATION
  Report Type: 
  Country: None (occurrence: None)
  Receive Date: 20100714
  Receipt Date: 20070709
  Transmission Date: 20110219
  Serious: No
  Sender: FDA-Public Use
  Company Number: US-PFIZER INC-2007057927

PATIENT
  Age: 69 Year
  Sex: Male

DRUGS (3)
  1. CHANTIX [Suspect]
     Dates: start: 20060901
  2. LEVOTHYROXINE SODIUM [Concomitant]
  3. TESTOSTERONE [Concomitant]

REACTIONS (1)
  - PROSTATIC DISORDER [None]
